FAERS Safety Report 8965520 (Version 2)
Quarter: 2013Q1

REPORT INFORMATION
  Report Type: Spontaneous
  Country: US (occurrence: None)
  Receive Date: 20121205
  Receipt Date: 20130128
  Transmission Date: 20140127
  Serious: Yes (Death, Hospitalization)
  Sender: FDA-Public Use
  Company Number: 2012SGN00537

PATIENT
  Age: 51 Year
  Sex: Male

DRUGS (7)
  1. BRENTUXIMAB VEDOTIN [Suspect]
     Indication: HODGKIN^S DISEASE REFRACTORY
     Dates: start: 20120119, end: 20120301
  2. LEVOTHYROXINE [Concomitant]
  3. ACYCLOVIR (ACYCLOVIR) [Concomitant]
  4. MULTIVITAMIN (VITAMINS NOS) [Concomitant]
  5. VITAMIN B12 (HYDROXOCOBALAMIN) [Concomitant]
  6. OMEPRAZOLE (OMEPRAZOLE) [Concomitant]
  7. ACETAMINOPHEN (ACETAMINOPHEN) [Concomitant]

REACTIONS (2)
  - Progressive multifocal leukoencephalopathy [None]
  - Weight decreased [None]
